FAERS Safety Report 5164741-3 (Version None)
Quarter: 2006Q4

REPORT INFORMATION
  Report Type: 
  Country: None (occurrence: None)
  Receive Date: 20061205
  Receipt Date: 20021001
  Transmission Date: 20070319
  Serious: Yes (Hospitalization)
  Sender: FDA-Public Use
  Company Number: FR-GLAXOSMITHKLINE-B0281427B

PATIENT
  Sex: Male
  Weight: 2.9 kg

DRUGS (6)
  1. RETROVIR [Suspect]
     Indication: ANTIVIRAL PROPHYLAXIS
     Route: 048
     Dates: start: 19960123
  2. RETROVIR [Suspect]
     Indication: HIV INFECTION
     Route: 048
     Dates: start: 19950101
  3. RETROVIR [Suspect]
     Route: 042
     Dates: start: 19960123, end: 19960123
  4. PENTAMIDINE ISETHIONATE [Concomitant]
     Route: 065
  5. VENTOLIN [Concomitant]
     Route: 065
  6. IRON [Concomitant]
     Route: 065

REACTIONS (12)
  - ANOREXIA [None]
  - CAESAREAN SECTION [None]
  - DEVELOPMENTAL DELAY [None]
  - DRUG EXPOSURE DURING PREGNANCY [None]
  - DYSGRAPHIA [None]
  - HYDROCELE [None]
  - HYPERTONIA [None]
  - NEUTROPENIA [None]
  - SPEECH DISORDER DEVELOPMENTAL [None]
  - TALIPES [None]
  - THROMBOCYTHAEMIA [None]
  - VISUAL ACUITY REDUCED [None]
